FAERS Safety Report 4941980-5 (Version None)
Quarter: 2006Q1

REPORT INFORMATION
  Report Type: 
  Country: None (occurrence: None)
  Receive Date: 20060313
  Receipt Date: 20050713
  Transmission Date: 20060701
  Serious: Yes (Hospitalization)
  Sender: FDA-Public Use
  Company Number: US-MERCK-0507USA01918

PATIENT
  Age: 61 Year
  Sex: Female

DRUGS (5)
  1. VIOXX [Suspect]
     Route: 048
     Dates: start: 19990101, end: 20040101
  2. CARDIZEM [Concomitant]
     Route: 065
  3. ZESTRIL [Concomitant]
     Route: 065
  4. HYDRODIURIL [Concomitant]
     Route: 065
  5. LIPITOR [Concomitant]
     Route: 065

REACTIONS (7)
  - ACUTE MYOCARDIAL INFARCTION [None]
  - ANGINA UNSTABLE [None]
  - CORONARY ARTERY DISEASE [None]
  - CYSTOCELE [None]
  - HYPERCHOLESTEROLAEMIA [None]
  - INFECTION [None]
  - PARAESTHESIA [None]
